FAERS Safety Report 14710966 (Version 1)
Quarter: 2018Q1

REPORT INFORMATION
  Report Type: Spontaneous
  Country: US (occurrence: US)
  Receive Date: 20180330
  Receipt Date: 20180330
  Transmission Date: 20180509
  Serious: Yes (Hospitalization)
  Sender: FDA-Public Use
  Company Number: None

PATIENT
  Age: 19 Year
  Sex: Male

DRUGS (1)
  1. OPSUMIT [Suspect]
     Active Substance: MACITENTAN
     Indication: PULMONARY EMBOLISM
     Route: 048

REACTIONS (3)
  - Pneumonia [None]
  - Respiratory failure [None]
  - Pulmonary congestion [None]

NARRATIVE: CASE EVENT DATE: 20171218
